FAERS Safety Report 25354353 (Version 12)
Quarter: 2025Q4

REPORT INFORMATION
  Report Type: Spontaneous
  Country: AR (occurrence: AR)
  Receive Date: 20250523
  Receipt Date: 20251029
  Transmission Date: 20260117
  Serious: Yes (Other)
  Sender: SANDOZ
  Company Number: AR-SANDOZ-SDZ2025AR033663

PATIENT
  Sex: Male
  Weight: 126 kg

DRUGS (4)
  1. TREPROSTINIL SODIUM [Suspect]
     Active Substance: TREPROSTINIL SODIUM
     Dosage: 5 NG/KG/MIN, CONTINUOUS INFUSION
     Route: 058
  2. TREPROSTINIL SODIUM [Suspect]
     Active Substance: TREPROSTINIL SODIUM
     Dosage: 5 NG/KG/MIN, CONTINUOUS INFUSION
     Route: 058
  3. TREPROSTINIL SODIUM [Suspect]
     Active Substance: TREPROSTINIL SODIUM
     Indication: Pulmonary arterial hypertension
     Dosage: 7 NG/KG/MIN, CONTINUOUS INFUSION
     Route: 058
     Dates: start: 20250513
  4. TREPROSTINIL SODIUM [Suspect]
     Active Substance: TREPROSTINIL SODIUM
     Dosage: 9 NG/KG/MIN, CONTINUOUS INFUSION
     Route: 058
     Dates: start: 20250513

REACTIONS (25)
  - Hypertension [Recovering/Resolving]
  - Gallbladder disorder [Unknown]
  - Pain [Unknown]
  - Pyrexia [Recovered/Resolved]
  - Erythema [Recovered/Resolved]
  - General physical health deterioration [Unknown]
  - Illness [Unknown]
  - Gastrointestinal disorder [Not Recovered/Not Resolved]
  - Cholelithiasis [Not Recovered/Not Resolved]
  - Agitation [Unknown]
  - Hepatic steatosis [Not Recovered/Not Resolved]
  - Abdominal tenderness [Unknown]
  - Injection site pain [Unknown]
  - Headache [Unknown]
  - Nausea [Unknown]
  - Puncture site erythema [Not Recovered/Not Resolved]
  - Vomiting [Recovered/Resolved]
  - Malaise [Recovered/Resolved]
  - Diarrhoea [Recovered/Resolved]
  - Injection site erythema [Unknown]
  - Headache [Unknown]
  - Vomiting [Unknown]
  - Injection site haemorrhage [Unknown]
  - Diarrhoea [Unknown]
  - Infusion site pain [Not Recovered/Not Resolved]

NARRATIVE: CASE EVENT DATE: 20250101
